FAERS Safety Report 25510215 (Version 1)
Quarter: 2025Q3

REPORT INFORMATION
  Report Type: Spontaneous
  Country: US (occurrence: US)
  Receive Date: 20250703
  Receipt Date: 20250703
  Transmission Date: 20251020
  Serious: No
  Sender: RADIUS PHARM
  Company Number: US-RADIUS HEALTH INC.-2024US003080

PATIENT
  Age: 72 Year
  Sex: Male

DRUGS (4)
  1. TYMLOS [Suspect]
     Active Substance: ABALOPARATIDE
     Indication: Senile osteoporosis
     Route: 058
     Dates: start: 202403
  2. OXYCODONE [Concomitant]
     Active Substance: OXYCODONE
     Indication: Product used for unknown indication
  3. PERCOCET [Concomitant]
     Active Substance: ACETAMINOPHEN\OXYCODONE HYDROCHLORIDE
     Indication: Arthritis
  4. NAPROXEN [Concomitant]
     Active Substance: NAPROXEN
     Indication: Arthritis

REACTIONS (6)
  - Arthritis [Unknown]
  - Arthralgia [Unknown]
  - Muscle spasms [Unknown]
  - Candida infection [Unknown]
  - Inguinal hernia [Unknown]
  - Procedural pain [Unknown]

NARRATIVE: CASE EVENT DATE: 20241122
